FAERS Safety Report 9623246 (Version 1)
Quarter: 2013Q4

REPORT INFORMATION
  Report Type: Spontaneous
  Country: US (occurrence: US)
  Receive Date: 20131015
  Receipt Date: 20131015
  Transmission Date: 20140711
  Serious: No
  Sender: FDA-Public Use
  Company Number: US-BAYER-2013-123343

PATIENT
  Sex: Male

DRUGS (1)
  1. ALEVE CAPLET [Suspect]
     Indication: MYALGIA
     Dosage: 2 DF, BID
     Route: 048

REACTIONS (2)
  - Extra dose administered [None]
  - Abdominal discomfort [None]
